FAERS Safety Report 11965340 (Version 4)
Quarter: 2016Q3

REPORT INFORMATION
  Report Type: Spontaneous
  Country: US (occurrence: US)
  Receive Date: 20160127
  Receipt Date: 20160701
  Transmission Date: 20161109
  Serious: Yes (Other)
  Sender: FDA-Public Use
  Company Number: US-SA-2016SA013178

PATIENT
  Age: 73 Year
  Sex: Male

DRUGS (8)
  1. TOPROL XL [Concomitant]
     Active Substance: METOPROLOL SUCCINATE
  2. MULTAQ [Suspect]
     Active Substance: DRONEDARONE
     Indication: TACHYCARDIA
     Route: 065
     Dates: start: 201509
  3. MULTAQ [Suspect]
     Active Substance: DRONEDARONE
     Indication: ATRIAL FIBRILLATION
     Route: 065
     Dates: start: 20150925
  4. TURMERIC [Concomitant]
     Active Substance: TURMERIC
  5. FLECAINIDE [Concomitant]
     Active Substance: FLECAINIDE
  6. MULTAQ [Suspect]
     Active Substance: DRONEDARONE
     Indication: TACHYCARDIA
     Route: 065
     Dates: start: 20150925
  7. COUMADIN [Concomitant]
     Active Substance: WARFARIN SODIUM
  8. MULTAQ [Suspect]
     Active Substance: DRONEDARONE
     Indication: ATRIAL FIBRILLATION
     Route: 065
     Dates: start: 201509

REACTIONS (4)
  - Cough [Not Recovered/Not Resolved]
  - Cardiac disorder [Recovering/Resolving]
  - Dyspnoea [Not Recovered/Not Resolved]
  - Sinus disorder [Unknown]

NARRATIVE: CASE EVENT DATE: 20160201
